FAERS Safety Report 5979083-3 (Version None)
Quarter: 2008Q4

REPORT INFORMATION
  Report Type: 
  Country: None (occurrence: None)
  Receive Date: 20081204
  Receipt Date: 20080613
  Transmission Date: 20090506
  Serious: No
  Sender: FDA-Public Use
  Company Number: US-ABBOTT-08P-163-0457170-00

PATIENT
  Sex: Male
  Weight: 79.45 kg

DRUGS (8)
  1. TRICOR [Suspect]
     Indication: BLOOD CHOLESTEROL
     Route: 048
     Dates: start: 20080401
  2. LISINOPRIL [Concomitant]
     Indication: HYPERTENSION
     Route: 048
     Dates: start: 20030101
  3. TOPROL-XL [Concomitant]
     Indication: HYPERTENSION
     Route: 048
     Dates: start: 20050101
  4. LANSOPRAZOLE [Concomitant]
     Indication: GASTROOESOPHAGEAL REFLUX DISEASE
     Route: 048
     Dates: start: 20030101
  5. ACETYLSALICYLIC ACID SRT [Concomitant]
     Indication: CARDIAC DISORDER
     Route: 048
     Dates: start: 20070101
  6. FINASTERIDE [Concomitant]
     Indication: PROPHYLAXIS
     Route: 048
     Dates: start: 20000101
  7. FINASTERIDE [Concomitant]
     Indication: ALOPECIA
  8. MULTI-VITAMIN [Concomitant]
     Indication: VITAMIN SUPPLEMENTATION
     Route: 048

REACTIONS (6)
  - DIARRHOEA [None]
  - ERYTHEMA [None]
  - INFLUENZA LIKE ILLNESS [None]
  - NAUSEA [None]
  - VESSEL PUNCTURE SITE REACTION [None]
  - VOMITING [None]
